FAERS Safety Report 5583978-2 (Version None)
Quarter: 2008Q1

REPORT INFORMATION
  Report Type: 
  Country: None (occurrence: None)
  Receive Date: 20080103
  Receipt Date: 20080103
  Transmission Date: 20080703
  Serious: No
  Sender: FDA-Public Use
  Company Number: None

PATIENT
  Age: 50 Year
  Sex: Male
  Weight: 100 kg

DRUGS (1)
  1. LITHIUM CARBONATE [Suspect]
     Dosage: 450 MG BID PO
     Route: 048

REACTIONS (1)
  - UNEVALUABLE EVENT [None]
